FAERS Safety Report 12841547 (Version 1)
Quarter: 2016Q4

REPORT INFORMATION
  Report Type: Spontaneous
  Country: US (occurrence: US)
  Receive Date: 20161012
  Receipt Date: 20161012
  Transmission Date: 20170207
  Serious: No
  Sender: FDA-Public Use
  Company Number: US-ELI_LILLY_AND_COMPANY-US201610000233

PATIENT
  Age: 10 Year
  Sex: Male

DRUGS (3)
  1. STRATTERA [Suspect]
     Active Substance: ATOMOXETINE HYDROCHLORIDE
     Indication: LEARNING DISORDER
     Dosage: 35 MG, UNKNOWN
     Dates: start: 201609, end: 20160927
  2. STRATTERA [Suspect]
     Active Substance: ATOMOXETINE HYDROCHLORIDE
     Indication: SENSORY PROCESSING DISORDER
  3. STRATTERA [Suspect]
     Active Substance: ATOMOXETINE HYDROCHLORIDE
     Indication: ATTENTION DEFICIT/HYPERACTIVITY DISORDER
     Dosage: 18 MG, UNKNOWN
     Dates: start: 201608, end: 201609

REACTIONS (3)
  - Mouth ulceration [Unknown]
  - Petechiae [Unknown]
  - Eye irritation [Unknown]

NARRATIVE: CASE EVENT DATE: 201609
